FAERS Safety Report 15779131 (Version 3)
Quarter: 2019Q2

REPORT INFORMATION
  Report Type: Spontaneous
  Country: CH (occurrence: CH)
  Receive Date: 20190101
  Receipt Date: 20190401
  Transmission Date: 20190711
  Serious: Yes (Hospitalization)
  Sender: FDA-Public Use
  Company Number: CH-AMGEN-CHESP2018186058

PATIENT
  Age: 54 Year
  Sex: Female
  Weight: 78 kg

DRUGS (9)
  1. TAUROLOCK [Suspect]
     Active Substance: TAUROLIDINE
     Indication: PRODUCT USED FOR UNKNOWN INDICATION
     Dosage: UNK
     Route: 065
  2. CALCIMAGON D3 [Concomitant]
     Active Substance: CALCIUM\CHOLECALCIFEROL
     Dosage: 500/800 MG
  3. LETROZOLE. [Concomitant]
     Active Substance: LETROZOLE
     Dosage: 2.5 MG, UNK
  4. PROLIA [Suspect]
     Active Substance: DENOSUMAB
     Indication: OSTEOPOROSIS PROPHYLAXIS
     Dosage: 60 MILLIGRAM, Q6MO
     Route: 058
  5. LETROZOLE. [Concomitant]
     Active Substance: LETROZOLE
  6. MAGNESIOCARD [Concomitant]
     Active Substance: MAGNESIUM ASPARTATE HYDROCHLORIDE
     Dosage: 10-20 MMOL
     Route: 048
  7. MAGNESIOCARD [Concomitant]
     Active Substance: MAGNESIUM ASPARTATE HYDROCHLORIDE
  8. CALCIMAGON D3 [Concomitant]
     Active Substance: CALCIUM\CHOLECALCIFEROL
  9. PROLIA [Suspect]
     Active Substance: DENOSUMAB
     Indication: PROPHYLAXIS

REACTIONS (2)
  - Dyspnoea [Recovered/Resolved]
  - Hypersensitivity [Recovered/Resolved]
